FAERS Safety Report 8069053-6 (Version None)
Quarter: 2011Q4

REPORT INFORMATION
  Report Type: 
  Country: None (occurrence: None)
  Receive Date: 20111221
  Receipt Date: 20110330
  Transmission Date: 20120403
  Serious: Yes (Hospitalization)
  Sender: FDA-Public Use
  Company Number: PHHY2011US04705

PATIENT
  Age: 33 Year
  Sex: Male
  Weight: 57.7 kg

DRUGS (3)
  1. EXJADE [Suspect]
     Indication: SICKLE CELL ANAEMIA
     Dosage: 1250 MG, DAILY, ORAL
     Route: 048
     Dates: start: 20101230
  2. HYDROCODONE BITARTRATE + ACETAMINOPHEN [Concomitant]
  3. FOLIC ACID [Concomitant]

REACTIONS (2)
  - VOMITING [None]
  - SICKLE CELL ANAEMIA WITH CRISIS [None]
